FAERS Safety Report 11988579 (Version 1)
Quarter: 2016Q1

REPORT INFORMATION
  Report Type: Spontaneous
  Country: FR (occurrence: FR)
  Receive Date: 20160202
  Receipt Date: 20160202
  Transmission Date: 20160526
  Serious: Yes (Hospitalization)
  Sender: FDA-Public Use
  Company Number: FR-SEPTODONT-201603152

PATIENT
  Age: 81 Year
  Sex: Male

DRUGS (1)
  1. DELTAZINE 40 MG/ML ADR?NALIN?E AU 1/100.000 [Suspect]
     Active Substance: ARTICAINE\EPINEPHRINE
     Indication: LOCAL ANAESTHESIA
     Route: 004
     Dates: start: 20150813, end: 20150813

REACTIONS (3)
  - Hypertension [Recovered/Resolved]
  - Bradycardia [Recovered/Resolved]
  - Muscle spasms [Recovered/Resolved]

NARRATIVE: CASE EVENT DATE: 20150813
